FAERS Safety Report 6182278-X (Version None)
Quarter: 2009Q2

REPORT INFORMATION
  Report Type: 
  Country: None (occurrence: None)
  Receive Date: 20090505
  Receipt Date: 20090505
  Transmission Date: 20091009
  Serious: Yes (Hospitalization)
  Sender: FDA-Public Use
  Company Number: None

PATIENT
  Sex: Male
  Weight: 64.8644 kg

DRUGS (1)
  1. FLUDARABINE PHOSPHATE [Suspect]
     Indication: NON-HODGKIN'S LYMPHOMA
     Dosage: 42MG QD X 3 Q 4 WEEKS IV
     Route: 042
     Dates: start: 20090204, end: 20090403

REACTIONS (1)
  - PULMONARY FIBROSIS [None]
